FAERS Safety Report 6230548-9 (Version None)
Quarter: 2009Q2

REPORT INFORMATION
  Report Type: 
  Country: None (occurrence: None)
  Receive Date: 20090615
  Receipt Date: 20090421
  Transmission Date: 20091009
  Serious: No
  Sender: FDA-Public Use
  Company Number: US-ABBOTT-09P-163-0569342-00

PATIENT
  Sex: Male
  Weight: 83.536 kg

DRUGS (11)
  1. TRILIPIX [Suspect]
     Indication: BLOOD CHOLESTEROL INCREASED
     Route: 048
     Dates: start: 20090413, end: 20090420
  2. ATENOLOL [Concomitant]
     Indication: HYPERTENSION
     Route: 048
  3. LISINOPRIL [Concomitant]
     Indication: HYPERTENSION
     Route: 048
  4. FELODIPINE [Concomitant]
     Indication: HYPERTENSION
     Route: 048
  5. OPANA ER [Concomitant]
     Indication: BACK PAIN
     Route: 048
  6. OPANA ER [Concomitant]
  7. OPANA [Concomitant]
     Indication: INJURY
     Route: 048
  8. OPANA [Concomitant]
  9. COLCHICINE [Concomitant]
     Indication: FIBROMYALGIA
     Route: 048
  10. SLEEPING PILL [Concomitant]
     Indication: INSOMNIA
     Route: 048
  11. LYRICA [Concomitant]
     Indication: FIBROMYALGIA
     Route: 048

REACTIONS (5)
  - ARTHRALGIA [None]
  - ASTHENIA [None]
  - HYPERHIDROSIS [None]
  - HYPOAESTHESIA [None]
  - RHINORRHOEA [None]
